FAERS Safety Report 5954647-1 (Version None)
Quarter: 2008Q4

REPORT INFORMATION
  Report Type: 
  Country: None (occurrence: None)
  Receive Date: 20081117
  Receipt Date: 20081106
  Transmission Date: 20090506
  Serious: Yes (Hospitalization)
  Sender: FDA-Public Use
  Company Number: US-JNJFOC-20080706759

PATIENT
  Sex: Male
  Weight: 69.85 kg

DRUGS (7)
  1. INVEGA [Suspect]
     Indication: DRUG USE FOR UNKNOWN INDICATION
     Route: 048
  2. ARTHROTEC [Concomitant]
     Indication: BONE PAIN
  3. ZYPREXA [Concomitant]
     Indication: DRUG USE FOR UNKNOWN INDICATION
  4. PROPRANOLOL [Concomitant]
     Indication: AKATHISIA
  5. PROPRANOLOL [Concomitant]
     Indication: HEADACHE
  6. CLARITIN [Concomitant]
     Indication: MULTIPLE ALLERGIES
  7. CLONOPIN [Concomitant]
     Indication: EPILEPSY

REACTIONS (3)
  - ABDOMINAL PAIN UPPER [None]
  - EXTRAPYRAMIDAL DISORDER [None]
  - TARDIVE DYSKINESIA [None]
